FAERS Safety Report 19234097 (Version 1)
Quarter: 2021Q2

REPORT INFORMATION
  Report Type: Spontaneous
  Country: FR (occurrence: FR)
  Receive Date: 20210508
  Receipt Date: 20210508
  Transmission Date: 20210717
  Serious: Yes (Other)
  Sender: FDA-Public Use
  Company Number: FR-ROCHE-2826403

PATIENT
  Age: 67 Year
  Sex: Male
  Weight: 75 kg

DRUGS (6)
  1. GLICLAZIDE [Concomitant]
     Active Substance: GLICLAZIDE
  2. MONOPROST [Concomitant]
     Active Substance: LATANOPROST
  3. RINOCLENIL [Concomitant]
     Active Substance: BECLOMETHASONE
  4. STAGID [Concomitant]
     Active Substance: METFORMIN PAMOATE
  5. TOUJEO [Concomitant]
     Active Substance: INSULIN GLARGINE
  6. MABTHERA [Suspect]
     Active Substance: RITUXIMAB
     Indication: IMMUNOGLOBULIN G4 RELATED DISEASE
     Route: 041
     Dates: start: 202007, end: 20210104

REACTIONS (2)
  - Tendonitis [Not Recovered/Not Resolved]
  - Arthritis [Not Recovered/Not Resolved]

NARRATIVE: CASE EVENT DATE: 202012
